FAERS Safety Report 19197258 (Version 1)
Quarter: 2021Q2

REPORT INFORMATION
  Report Type: Spontaneous
  Country: US (occurrence: US)
  Receive Date: 20210430
  Receipt Date: 20210430
  Transmission Date: 20210717
  Serious: No
  Sender: FDA-Public Use
  Company Number: US-GLAXOSMITHKLINE-USCH2021023340

PATIENT
  Age: 75 Year
  Sex: Female

DRUGS (2)
  1. STEROIDS [Suspect]
     Active Substance: UNSPECIFIED INGREDIENT
     Indication: PRODUCT USED FOR UNKNOWN INDICATION
     Dosage: UNK
  2. VOLTAREN ARTHRITIS PAIN [Suspect]
     Active Substance: DICLOFENAC SODIUM
     Indication: ARTHRITIS
     Dosage: UNK
     Dates: start: 20210415, end: 20210422

REACTIONS (7)
  - Application site rash [Unknown]
  - Application site urticaria [Unknown]
  - Condition aggravated [Unknown]
  - Medication error [Unknown]
  - Blood pressure increased [Unknown]
  - Application site erythema [Unknown]
  - Application site acne [Unknown]

NARRATIVE: CASE EVENT DATE: 20210424
